FAERS Safety Report 5542613-X (Version None)
Quarter: 2007Q4

REPORT INFORMATION
  Report Type: 
  Country: None (occurrence: None)
  Receive Date: 20071205
  Receipt Date: 20071205
  Transmission Date: 20080405
  Serious: No
  Sender: FDA-Public Use
  Company Number: None

PATIENT
  Age: 56 Year
  Sex: Female
  Weight: 52.6173 kg

DRUGS (6)
  1. CIMETIDINE [Suspect]
     Dosage: 800MG PO BID
     Route: 048
     Dates: start: 20071001, end: 20071030
  2. LITHIUM CARBONATE [Concomitant]
  3. ASPIRIN [Concomitant]
  4. ESTRADIOL [Concomitant]
  5. M.V.I. [Concomitant]
  6. CA [Concomitant]

REACTIONS (3)
  - ALANINE AMINOTRANSFERASE INCREASED [None]
  - ASPARTATE AMINOTRANSFERASE INCREASED [None]
  - BLOOD ALKALINE PHOSPHATASE INCREASED [None]
